FAERS Safety Report 18038369 (Version 1)
Quarter: 2020Q3

REPORT INFORMATION
  Report Type: Spontaneous
  Country: GB (occurrence: GB)
  Receive Date: 20200717
  Receipt Date: 20200717
  Transmission Date: 20201103
  Serious: Yes (Other)
  Sender: FDA-Public Use
  Company Number: NVSC2020GB200448

PATIENT
  Age: 83 Year
  Sex: Female
  Weight: 93 kg

DRUGS (16)
  1. PRAVASTATIN. [Concomitant]
     Active Substance: PRAVASTATIN
     Indication: BLOOD CHOLESTEROL
     Dosage: 1 DF, QHS (NIGHT) (CUMULATIVE DOSE TO FIRST REACTION: 118.958336 DF)
     Route: 065
     Dates: start: 20200226
  2. OMEPRAZOLE. [Concomitant]
     Active Substance: OMEPRAZOLE
     Indication: PRODUCT USED FOR UNKNOWN INDICATION
     Dosage: 1 DF, QD (CUMULATIVE DOSE TO FIRST REACTION: 118.958336 DF)
     Route: 065
     Dates: start: 20200226
  3. CALCIUM CARBONATE. [Concomitant]
     Active Substance: CALCIUM CARBONATE
     Indication: PRODUCT USED FOR UNKNOWN INDICATION
     Dosage: 1 DF, QD (CUMULATIVE DOSE TO FIRST REACTION: 118.958336 DF)
     Route: 065
     Dates: start: 20200226
  4. CEFALEXIN [Concomitant]
     Active Substance: CEPHALEXIN
     Indication: PRODUCT USED FOR UNKNOWN INDICATION
     Dosage: 20 ML, QD (CUMULATIVE DOSE TO FIRST REACTION: 1160 ML)
     Route: 065
     Dates: start: 20200427, end: 20200504
  5. FENBID [Concomitant]
     Active Substance: IBUPROFEN
     Indication: PRODUCT USED FOR UNKNOWN INDICATION
     Dosage: APPLY 3?4 TIMES/DAY, QD
     Route: 065
     Dates: start: 20200518
  6. LETROZOLE. [Concomitant]
     Active Substance: LETROZOLE
     Indication: PRODUCT USED FOR UNKNOWN INDICATION
     Dosage: 1 DF, QD (CUMULATIVE DOSE TO FIRST REACTION: 116.958336 DF)
     Route: 065
     Dates: start: 20200228
  7. LACTULOSE. [Concomitant]
     Active Substance: LACTULOSE
     Indication: PRODUCT USED FOR UNKNOWN INDICATION
     Dosage: 15 ML, BID / AS REQUIRED
     Route: 065
     Dates: start: 20200226
  8. PREGABALIN. [Concomitant]
     Active Substance: PREGABALIN
     Indication: PRODUCT USED FOR UNKNOWN INDICATION
     Dosage: BID (1?2 TWICE DAILY)
     Route: 065
     Dates: start: 20200623
  9. BISOPROLOL [Concomitant]
     Active Substance: BISOPROLOL
     Indication: PRODUCT USED FOR UNKNOWN INDICATION
     Dosage: 1 DF, QD (CUMULATIVE DOSE TO FIRST REACTION: 118.958336 DF)
     Route: 065
     Dates: start: 20200226
  10. GABAPENTIN. [Suspect]
     Active Substance: GABAPENTIN
     Indication: PRODUCT USED FOR UNKNOWN INDICATION
     Dosage: 600 MG, QD (CUMULATIVE DOSE TO FIRST REACTION: 71375 MG)
     Route: 065
     Dates: start: 20200226
  11. PARACETAMOL [Concomitant]
     Active Substance: ACETAMINOPHEN
     Indication: PRODUCT USED FOR UNKNOWN INDICATION
     Dosage: UNK UNK, QID (TAKE ONE OR TWO, UP TO 4 TIMES A DAY WH)
     Route: 065
     Dates: start: 20200313
  12. SODIUM FEREDETATE [Concomitant]
     Active Substance: SODIUM FEREDETATE
     Indication: PRODUCT USED FOR UNKNOWN INDICATION
     Dosage: 15 ML, QD (CUMULATIVE DOSE TO FIRST REACTION: 1784.375 ML)
     Route: 065
     Dates: start: 20200226
  13. EXEMESTANE. [Concomitant]
     Active Substance: EXEMESTANE
     Indication: PRODUCT USED FOR UNKNOWN INDICATION
     Dosage: 1 DF, QD (CUMULATIVE DOSE TO FIRST REACTION: 118.958336 DF)
     Route: 065
     Dates: start: 20200226
  14. FUROSEMIDE. [Concomitant]
     Active Substance: FUROSEMIDE
     Indication: PRODUCT USED FOR UNKNOWN INDICATION
     Dosage: 2 DF, QD (MORNING) (CUMULATIVE DOSE TO FIRST REACTION: 237.91667 DF)
     Route: 065
     Dates: start: 20200226
  15. GLYCERYL TRINITRATE [Concomitant]
     Active Substance: NITROGLYCERIN
     Indication: PRODUCT USED FOR UNKNOWN INDICATION
     Dosage: 1 DF, PRN (ONE PUFF UNDER THE TONGUE)
     Route: 060
     Dates: start: 20200226
  16. ACENOCOUMAROL [Concomitant]
     Active Substance: ACENOCOUMAROL
     Indication: PRODUCT USED FOR UNKNOWN INDICATION
     Dosage: QD (TAKE DAILY AS DIRECTED BY THE DOCTOR )
     Route: 065
     Dates: start: 20200226

REACTIONS (2)
  - Lip swelling [Unknown]
  - Hypersensitivity [Unknown]

NARRATIVE: CASE EVENT DATE: 20200624
